FAERS Safety Report 7148911-0 (Version None)
Quarter: 2010Q4

REPORT INFORMATION
  Report Type: 
  Country: None (occurrence: None)
  Receive Date: 20101209
  Receipt Date: 20101130
  Transmission Date: 20110411
  Serious: Yes (Other)
  Sender: FDA-Public Use
  Company Number: A0864044A

PATIENT
  Age: 77 Year
  Sex: Female

DRUGS (4)
  1. PROMACTA [Suspect]
     Indication: THROMBOCYTOPENIA
     Dosage: 50MG ALTERNATE DAYS
     Route: 048
     Dates: end: 20101119
  2. ALDACTONE [Suspect]
  3. HYDREA [Suspect]
  4. PLATELETS [Concomitant]
     Indication: THROMBOCYTOPENIA

REACTIONS (17)
  - ASCITES [None]
  - ATELECTASIS [None]
  - CONCOMITANT DISEASE PROGRESSION [None]
  - FALL [None]
  - FATIGUE [None]
  - FEMUR FRACTURE [None]
  - HAEMATOLOGICAL MALIGNANCY [None]
  - HEPATIC STEATOSIS [None]
  - HIP FRACTURE [None]
  - LIVER FUNCTION TEST ABNORMAL [None]
  - LYMPHADENOPATHY [None]
  - OEDEMA [None]
  - OSTEOPENIA [None]
  - PERICARDIAL EFFUSION [None]
  - PLEURAL EFFUSION [None]
  - RIB FRACTURE [None]
  - SPLENOMEGALY [None]
